FAERS Safety Report 4439776-6 (Version None)
Quarter: 2004Q3

REPORT INFORMATION
  Report Type: 
  Country: None (occurrence: None)
  Receive Date: 20040831
  Receipt Date: 20040817
  Transmission Date: 20050211
  Serious: Yes (Hospitalization)
  Sender: FDA-Public Use
  Company Number: 2001-00049

PATIENT
  Age: 68 Year
  Sex: Female

DRUGS (8)
  1. ALLOPURINOL [Suspect]
     Indication: BLOOD URIC ACID INCREASED
     Dosage: 300 MG, DAILY, ORAL
     Route: 048
     Dates: start: 19980923, end: 20010131
  2. ALLOPURINOL [Suspect]
     Indication: GOUTY ARTHRITIS
     Dosage: 300 MG, DAILY, ORAL
     Route: 048
     Dates: start: 19980923, end: 20010131
  3. CLINORIL [Concomitant]
  4. INFED [Concomitant]
  5. LAMISIL [Concomitant]
  6. PRAVACHOL [Concomitant]
  7. LIPITOR [Concomitant]
  8. ZYBAN [Concomitant]

REACTIONS (18)
  - ALOPECIA [None]
  - ANAEMIA [None]
  - BLOOD CREATINE PHOSPHOKINASE INCREASED [None]
  - BRONCHITIS [None]
  - CARDIAC FAILURE [None]
  - CARDIAC FAILURE CONGESTIVE [None]
  - CHRONIC OBSTRUCTIVE AIRWAYS DISEASE [None]
  - DIARRHOEA [None]
  - DIFFICULTY IN WALKING [None]
  - GASTROOESOPHAGEAL REFLUX DISEASE [None]
  - HEADACHE [None]
  - IRON DEFICIENCY ANAEMIA [None]
  - NASAL CONGESTION [None]
  - OESOPHAGEAL ULCER HAEMORRHAGE [None]
  - OESOPHAGITIS [None]
  - PRURITUS [None]
  - RASH [None]
  - RENAL FAILURE [None]
